FAERS Safety Report 6257472-X (Version None)
Quarter: 2009Q3

REPORT INFORMATION
  Report Type: 
  Country: None (occurrence: None)
  Receive Date: 20090706
  Receipt Date: 20090622
  Transmission Date: 20100115
  Serious: Yes (Hospitalization)
  Sender: FDA-Public Use
  Company Number: GB-JNJFOC-20070903989

PATIENT
  Sex: Female
  Weight: 134.2 kg

DRUGS (34)
  1. PLACEBO [Suspect]
     Dosage: WEEK 5, 6 CAPSULES
     Route: 058
  2. PLACEBO [Suspect]
     Dosage: WEEK 4, 6 CAPSULES
     Route: 058
  3. PLACEBO [Suspect]
     Dosage: WEEK 3, 5 CAPSULES
     Route: 058
  4. PLACEBO [Suspect]
     Dosage: WEEK 2, 5 CAPSULES
     Route: 058
  5. PLACEBO [Suspect]
     Dosage: WEEK 1, 4 CAPSULES
     Route: 058
  6. PLACEBO [Suspect]
     Indication: RHEUMATOID ARTHRITIS
     Dosage: WEEK 0, 4 CAPSULES
     Route: 058
  7. METHOTREXATE [Suspect]
     Dosage: WEEK 20, DOSE NOT REPORTED
     Route: 048
  8. METHOTREXATE [Suspect]
     Dosage: WEEK 19, DOSE NOT REPORTED
     Route: 048
  9. METHOTREXATE [Suspect]
     Dosage: WEEK 18, DOSE NOT REPORTED
     Route: 048
  10. METHOTREXATE [Suspect]
     Dosage: WEEK 17, DOSE NOT REPORTED
     Route: 048
  11. METHOTREXATE [Suspect]
     Dosage: WEEK 16, DOSE NOT REPORTED
     Route: 048
  12. METHOTREXATE [Suspect]
     Dosage: WEEK 15, 8 CAPSULES
     Route: 048
  13. METHOTREXATE [Suspect]
     Dosage: WEEK 14, 8 CAPSULES
     Route: 048
  14. METHOTREXATE [Suspect]
     Dosage: WEEK 13, 8 CAPSULES
     Route: 048
  15. METHOTREXATE [Suspect]
     Dosage: WEEK 12, 8 CAPSULES
     Route: 048
  16. METHOTREXATE [Suspect]
     Dosage: WEEK 11, 8 CAPSULES
     Route: 048
  17. METHOTREXATE [Suspect]
     Dosage: WEEK 10, 8 CAPSULES
     Route: 048
  18. METHOTREXATE [Suspect]
     Dosage: WEEK 9, 8 CAPSULES
     Route: 048
  19. METHOTREXATE [Suspect]
     Dosage: WEEK 8, 8 CAPSULES
     Route: 048
  20. METHOTREXATE [Suspect]
     Dosage: WEEK 7, 7 CAPSULES
     Route: 048
  21. METHOTREXATE [Suspect]
     Dosage: WEEK 6, 7 CAPSULES
     Route: 048
  22. METHOTREXATE [Suspect]
     Dosage: WEEK 5, 6 CAPSULES
     Route: 048
  23. METHOTREXATE [Suspect]
     Dosage: WEEK 4, 6 CAPSULES
     Route: 048
  24. METHOTREXATE [Suspect]
     Dosage: WEEK 3, 5 CAPSULES
     Route: 048
  25. METHOTREXATE [Suspect]
     Dosage: WEEK 2, 5 CAPSULES
     Route: 048
  26. METHOTREXATE [Suspect]
     Dosage: WEEK 1, 4 CAPSULES
     Route: 048
  27. METHOTREXATE [Suspect]
     Indication: RHEUMATOID ARTHRITIS
     Dosage: WEEK 0, 4 CAPSULES
     Route: 048
  28. ISONIASID [Concomitant]
     Indication: ANTIBIOTIC PROPHYLAXIS
     Route: 048
  29. VENTOLIN [Concomitant]
     Indication: ASTHMA
     Dosage: DOSE 4 PUFFS EVERY 4 HRS
     Route: 055
  30. XENICAL [Concomitant]
     Indication: WEIGHT DECREASED
     Route: 048
  31. PARACETAMOL [Concomitant]
     Indication: ARTHRALGIA
     Route: 048
  32. ACETAMINOPHEN W/ CODEINE [Concomitant]
     Indication: ARTHRALGIA
     Dosage: DOSE 500/8 MG AS NEEDED
     Route: 048
  33. SALMETEROL/FLUTICASONE [Concomitant]
     Indication: ASTHMA
     Dosage: DOSE 50MCG/250 MCG AS NEEDED
     Route: 055
  34. BECLAMETHASONE [Concomitant]
     Indication: ASTHMA
     Dosage: DOSE 100 MCG AS NEEDED
     Route: 055

REACTIONS (3)
  - PHARYNGITIS [None]
  - PYREXIA [None]
  - TONSILLITIS [None]
